FAERS Safety Report 23588292 (Version 1)
Quarter: 2024Q1

REPORT INFORMATION
  Report Type: Spontaneous
  Country: US (occurrence: US)
  Receive Date: 20240302
  Receipt Date: 20240302
  Transmission Date: 20240410
  Serious: No
  Sender: FDA-Public Use
  Company Number: US-JNJFOC-20240255241

PATIENT
  Age: 82 Year
  Sex: Female

DRUGS (4)
  1. TYLENOL [Suspect]
     Active Substance: ACETAMINOPHEN
     Indication: Headache
     Route: 065
     Dates: start: 202402
  2. TYVASO DPI [Concomitant]
     Active Substance: TREPROSTINIL
     Indication: Pulmonary arterial hypertension
     Dosage: 64 UG, QID, INHALATION
     Route: 045
  3. TYVASO DPI [Concomitant]
     Active Substance: TREPROSTINIL
     Route: 045
     Dates: start: 202310
  4. TYVASO DPI [Concomitant]
     Active Substance: TREPROSTINIL
     Dosage: 48 UG, INHALATION
     Route: 045

REACTIONS (1)
  - Off label use [Unknown]

NARRATIVE: CASE EVENT DATE: 20240201
